FAERS Safety Report 9459037 (Version 1)
Quarter: 2013Q3

REPORT INFORMATION
  Report Type: Spontaneous
  Country: PL (occurrence: PL)
  Receive Date: 20130814
  Receipt Date: 20130814
  Transmission Date: 20140515
  Serious: Yes (Other)
  Sender: FDA-Public Use
  Company Number: PL-ROXANE LABORATORIES, INC.-2013-RO-01330RO

PATIENT
  Age: 22 Year
  Sex: Female

DRUGS (9)
  1. CYCLOPHOSPHAMIDE TABLETS USP [Suspect]
     Indication: LUPUS NEPHRITIS
  2. CYCLOPHOSPHAMIDE TABLETS USP [Suspect]
     Dates: start: 200904
  3. MYCOPHENOLATE MOFETIL [Suspect]
     Indication: LUPUS NEPHRITIS
  4. METHOTREXATE [Suspect]
     Indication: LUPUS NEPHRITIS
  5. PREDNISONE [Suspect]
     Indication: LUPUS NEPHRITIS
     Dosage: 20 MG
  6. GLYCOCORTICOIDS [Suspect]
     Indication: LUPUS NEPHRITIS
     Route: 042
     Dates: end: 201106
  7. CHLOROQUINE [Suspect]
     Indication: LUPUS NEPHRITIS
     Dosage: 0.25 G
  8. ENOXAPARIN [Suspect]
     Indication: LUPUS NEPHRITIS
  9. WARFARIN [Suspect]
     Indication: LUPUS NEPHRITIS
     Dates: end: 201112

REACTIONS (2)
  - Respiratory tract infection [Unknown]
  - Proteinuria [Unknown]
